FAERS Safety Report 8611933 (Version 2)
Quarter: 2014Q1

REPORT INFORMATION
  Report Type: Spontaneous
  Country: US (occurrence: None)
  Receive Date: 20120323
  Receipt Date: 20130305
  Transmission Date: 20141002
  Serious: Yes (Hospitalization)
  Sender: FDA-Public Use
  Company Number: 163-21880-11110730

PATIENT
  Age: 44 Year
  Sex: Male

DRUGS (2)
  1. REVLIMID [Suspect]
     Indication: MYELODYSPLASTIC SYNDROME
     Dosage: 10 MG, 1 IN 1 D, PO
     Route: 048
     Dates: start: 20111027, end: 2011
  2. PREDNISONE [Concomitant]

REACTIONS (5)
  - General physical health deterioration [None]
  - Pneumonia [None]
  - Fungal infection [None]
  - Myelodysplastic syndrome [None]
  - Disease progression [None]
